FAERS Safety Report 25483962 (Version 2)
Quarter: 2025Q3

REPORT INFORMATION
  Report Type: Spontaneous
  Country: EU (occurrence: EU)
  Receive Date: 20250626
  Receipt Date: 20250910
  Transmission Date: 20251021
  Serious: Yes (Hospitalization, Other)
  Sender: ROCHE
  Company Number: EU-ROCHE-10000317716

PATIENT
  Sex: Female

DRUGS (4)
  1. OCREVUS [Suspect]
     Active Substance: OCRELIZUMAB
     Indication: Relapsing-remitting multiple sclerosis
     Route: 065
     Dates: start: 202205
  2. NIMESULIDE [Concomitant]
     Active Substance: NIMESULIDE
  3. NEURONTIN [Concomitant]
     Active Substance: GABAPENTIN
  4. Hexatin [Concomitant]

REACTIONS (11)
  - C-reactive protein increased [Unknown]
  - Arthralgia [Unknown]
  - Peripheral swelling [Unknown]
  - Myalgia [Unknown]
  - Muscle abscess [Unknown]
  - Lung abscess [Unknown]
  - Liver abscess [Unknown]
  - Haemangioma [Unknown]
  - Furuncle [Unknown]
  - Carbuncle [Unknown]
  - Infectious pleural effusion [Unknown]
